FAERS Safety Report 15887711 (Version 2)
Quarter: 2019Q1

REPORT INFORMATION
  Report Type: Spontaneous
  Country: US (occurrence: US)
  Receive Date: 20190130
  Receipt Date: 20190206
  Transmission Date: 20190417
  Serious: Yes (Hospitalization)
  Sender: FDA-Public Use
  Company Number: US-TEVA-2019-US-1004381

PATIENT
  Age: 87 Year
  Sex: Male

DRUGS (2)
  1. AMIODARONE [Suspect]
     Active Substance: AMIODARONE
     Indication: VENTRICULAR FIBRILLATION
     Dosage: 200 MILLIGRAM DAILY;
     Route: 065
  2. RIVAROXABAN [Interacting]
     Active Substance: RIVAROXABAN
     Indication: ATRIAL FIBRILLATION
     Dosage: 20 MILLIGRAM DAILY;
     Route: 065

REACTIONS (8)
  - Lactic acidosis [Recovered/Resolved]
  - Drug interaction [Recovered/Resolved]
  - Acute kidney injury [Recovering/Resolving]
  - Leukocytosis [Recovering/Resolving]
  - Hepatic enzyme increased [Recovered/Resolved]
  - Pericardial haemorrhage [Recovered/Resolved]
  - Cardiac tamponade [Recovered/Resolved]
  - Hypoperfusion [Recovering/Resolving]
